FAERS Safety Report 9624154 (Version 2)
Quarter: 2013Q4

REPORT INFORMATION
  Report Type: Spontaneous
  Country: GB (occurrence: GB)
  Receive Date: 20131015
  Receipt Date: 20131015
  Transmission Date: 20140711
  Serious: Yes (Hospitalization)
  Sender: FDA-Public Use
  Company Number: GB-NICOBRDEVP-2013-04806

PATIENT
  Age: 28 Year
  Sex: 0

DRUGS (4)
  1. TRAMADOL (UNKNOWN) [Suspect]
     Indication: ANALGESIC THERAPY
     Dosage: 50-100 MG 4 TIMES A DAY
     Route: 048
     Dates: start: 201208, end: 20130220
  2. TRAMADOL (UNKNOWN) [Suspect]
     Dosage: 400 MG, UNK
     Route: 048
  3. LEVOTHYROXINE [Concomitant]
     Indication: PRODUCT USED FOR UNKNOWN INDICATION
     Dosage: UNK
     Route: 065
  4. AMITRIPTYLINE [Concomitant]
     Indication: PRODUCT USED FOR UNKNOWN INDICATION
     Dosage: UNK
     Route: 065

REACTIONS (3)
  - Convulsion [Recovering/Resolving]
  - Headache [Unknown]
  - Intentional overdose [Unknown]
